FAERS Safety Report 5780608-1 (Version None)
Quarter: 2008Q2

REPORT INFORMATION
  Report Type: 
  Country: None (occurrence: None)
  Receive Date: 20080620
  Receipt Date: 20080612
  Transmission Date: 20081010
  Serious: Yes (Other)
  Sender: FDA-Public Use
  Company Number: US-ELI_LILLY_AND_COMPANY-US200806002834

PATIENT
  Age: 41 Year
  Sex: Male

DRUGS (4)
  1. HUMALOG [Suspect]
     Dosage: UNK, AS NEEDED
  2. HUMULIN N [Suspect]
     Indication: DIABETES MELLITUS
     Dosage: 40 U, 2/D
  3. HUMULIN R [Suspect]
     Indication: DIABETES MELLITUS
     Dosage: UNK,SLIDING SCALE TWICE A DAY
  4. NOVOLIN N [Concomitant]

REACTIONS (6)
  - DIABETIC RETINOPATHY [None]
  - EXPIRED DRUG ADMINISTERED [None]
  - MACULAR DEGENERATION [None]
  - NEUROPATHY PERIPHERAL [None]
  - RETINAL DETACHMENT [None]
  - VISUAL ACUITY REDUCED [None]
